FAERS Safety Report 5277232-6 (Version None)
Quarter: 2007Q1

REPORT INFORMATION
  Report Type: 
  Country: None (occurrence: None)
  Receive Date: 20061213
  Receipt Date: 20050117
  Transmission Date: 20070707
  Serious: Yes (Hospitalization)
  Sender: FDA-Public Use
  Company Number: 2004UW23764

PATIENT
  Age: 77 Year
  Sex: Female

DRUGS (12)
  1. SEROQUEL [Suspect]
     Indication: SCHIZOAFFECTIVE DISORDER
     Dosage: 100 MG HS PO
     Route: 048
     Dates: start: 19990101
  2. REMERON [Suspect]
     Indication: SCHIZOAFFECTIVE DISORDER
     Dosage: 45 MG DAILY PO
     Route: 048
     Dates: start: 19990101
  3. CARDIZEM [Concomitant]
  4. CLONIDINE [Concomitant]
  5. PROTONIX [Concomitant]
  6. SENNA [Concomitant]
  7. CELEBREX [Concomitant]
  8. COMBIVENT [Concomitant]
  9. FLOVENT [Concomitant]
  10. ALBUTEROL [Concomitant]
  11. ATROVENT [Concomitant]
  12. OXYGEN [Concomitant]

REACTIONS (5)
  - DIABETES MELLITUS INSULIN-DEPENDENT [None]
  - DIABETIC KETOACIDOSIS [None]
  - HEPATIC CYST [None]
  - LIVER FUNCTION TEST ABNORMAL [None]
  - RENAL FAILURE ACUTE [None]
